FAERS Safety Report 14326357 (Version 3)
Quarter: 2018Q1

REPORT INFORMATION
  Report Type: Report from Study
  Country: CA (occurrence: CA)
  Receive Date: 20171227
  Receipt Date: 20180104
  Transmission Date: 20180509
  Serious: Yes (Disabling)
  Sender: FDA-Public Use
  Company Number: CA-AMGEN-CANSL2017187488

PATIENT
  Age: 60 Year
  Sex: Female
  Weight: 73.75 kg

DRUGS (3)
  1. KYPROLIS [Suspect]
     Active Substance: CARFILZOMIB
     Dosage: 103 MG, TWICE WEEKLY X 3 WEEKS ;1 WEEK OFF; MULTIPLE CYCLES
     Route: 042
     Dates: start: 2017, end: 2017
  2. KYPROLIS [Suspect]
     Active Substance: CARFILZOMIB
     Dosage: 103 MG, TWICE WEEKLY X 3 WEEKS ;1 WEEK OFF; MULTIPLE CYCLES
     Route: 042
     Dates: start: 2017
  3. KYPROLIS [Suspect]
     Active Substance: CARFILZOMIB
     Indication: PLASMA CELL MYELOMA
     Dosage: 103 MG, TWICE WEEKLY X 3 WEEKS ;1 WEEK OFF; MULTIPLE CYCLES
     Route: 042
     Dates: start: 20171114, end: 2017

REACTIONS (9)
  - Pain [Recovered/Resolved]
  - Somnolence [Recovered/Resolved]
  - Headache [Recovered/Resolved]
  - Dyspnoea [Recovered/Resolved]
  - Malaise [Recovered/Resolved]
  - Nausea [Recovered/Resolved]
  - Fear [Unknown]
  - Fatigue [Recovered/Resolved]
  - Vomiting [Recovered/Resolved]

NARRATIVE: CASE EVENT DATE: 2017
